FAERS Safety Report 9551085 (Version 2)
Quarter: 2013Q4

REPORT INFORMATION
  Report Type: Spontaneous
  Country: AU (occurrence: AU)
  Receive Date: 20130925
  Receipt Date: 20131127
  Transmission Date: 20140711
  Serious: Yes (Other)
  Sender: FDA-Public Use
  Company Number: AU-009507513-1309AUS009169

PATIENT
  Age: 31 Year
  Sex: Male

DRUGS (2)
  1. SAPHRIS [Suspect]
     Indication: MAJOR DEPRESSION
     Dosage: 5 MG, UNK
     Route: 060
  2. FLUOXETINE [Concomitant]
     Dosage: UNK

REACTIONS (2)
  - Palpitations [Unknown]
  - Off label use [Unknown]
